FAERS Safety Report 13849141 (Version 1)
Quarter: 2017Q3

REPORT INFORMATION
  Report Type: Spontaneous
  Country: US (occurrence: US)
  Receive Date: 20170809
  Receipt Date: 20170809
  Transmission Date: 20171127
  Serious: No
  Sender: FDA-Public Use
  Company Number: None

PATIENT
  Age: 88 Year
  Sex: Male
  Weight: 93.9 kg

DRUGS (13)
  1. JANTOVEN [Concomitant]
     Active Substance: WARFARIN SODIUM
  2. FISH OIL [Concomitant]
     Active Substance: FISH OIL
  3. METOPROLOL TARTRATE. [Concomitant]
     Active Substance: METOPROLOL TARTRATE
  4. VITAMIN D3 [Concomitant]
     Active Substance: CHOLECALCIFEROL
  5. GLYBURIDE. [Concomitant]
     Active Substance: GLYBURIDE
  6. NITROGLYCERIN. [Concomitant]
     Active Substance: NITROGLYCERIN
  7. LORATADINE ALLERGY RELIEF [Concomitant]
     Active Substance: LORATADINE
  8. FLORISMIDE WATER PILL [Concomitant]
  9. NASAL SPRAY [Concomitant]
     Active Substance: UNSPECIFIED INGREDIENT
  10. MULTI VITAMINS [Concomitant]
     Active Substance: VITAMINS
  11. PLAVIX [Concomitant]
     Active Substance: CLOPIDOGREL BISULFATE
  12. VITAMIN C [Concomitant]
     Active Substance: ASCORBIC ACID
  13. JANUMET [Suspect]
     Active Substance: METFORMIN HYDROCHLORIDE\SITAGLIPTIN PHOSPHATE
     Indication: TYPE 2 DIABETES MELLITUS
     Dosage: DOSE - PILLS?FREQUENCY - TWICE?ROUTE - MOUTH
     Route: 048
     Dates: start: 20090715

REACTIONS (1)
  - Deafness [None]
